FAERS Safety Report 25897851 (Version 2)
Quarter: 2025Q4

REPORT INFORMATION
  Report Type: Spontaneous
  Country: EU (occurrence: EU)
  Receive Date: 20251008
  Receipt Date: 20251021
  Transmission Date: 20260118
  Serious: Yes (Congenital Anomaly, Other)
  Sender: PFIZER
  Company Number: None

PATIENT
  Sex: Male

DRUGS (2)
  1. METHOTREXATE SODIUM [Suspect]
     Active Substance: METHOTREXATE SODIUM
     Indication: Ectopic pregnancy termination
     Dosage: 1 DF
     Dates: start: 20120928, end: 20130613
  2. FOLIC ACID [Concomitant]
     Active Substance: FOLIC ACID
     Dosage: UNK
     Dates: start: 20120504

REACTIONS (11)
  - Drug exposure before pregnancy [Unknown]
  - Psychomotor retardation [Not Recovered/Not Resolved]
  - Hypotonia [Not Recovered/Not Resolved]
  - Hypertonia [Not Recovered/Not Resolved]
  - Dystonia [Not Recovered/Not Resolved]
  - Dysphagia [Not Recovered/Not Resolved]
  - Gastrooesophageal reflux disease [Not Recovered/Not Resolved]
  - Snoring [Not Recovered/Not Resolved]
  - Perinatal stroke [Recovered/Resolved with Sequelae]
  - Epilepsy [Unknown]
  - Neonatal disorder [Recovered/Resolved]

NARRATIVE: CASE EVENT DATE: 20130101
